FAERS Safety Report 18489882 (Version 1)
Quarter: 2020Q4

REPORT INFORMATION
  Report Type: Spontaneous
  Country: AT (occurrence: AT)
  Receive Date: 20201111
  Receipt Date: 20201111
  Transmission Date: 20210114
  Serious: Yes (Death, Hospitalization)
  Sender: FDA-Public Use
  Company Number: AT-PFIZER INC-2020442900

PATIENT
  Age: 75 Year
  Sex: Male

DRUGS (1)
  1. LORVIQUA [Suspect]
     Active Substance: LORLATINIB
     Indication: LUNG ADENOCARCINOMA
     Dosage: 100 MG
     Route: 048
     Dates: end: 20191216

REACTIONS (4)
  - General physical health deterioration [Fatal]
  - Neoplasm progression [Fatal]
  - Respiratory failure [Fatal]
  - Pneumonia [Fatal]
